FAERS Safety Report 5101431-7 (Version None)
Quarter: 2006Q3

REPORT INFORMATION
  Report Type: 
  Country: None (occurrence: None)
  Receive Date: 20060911
  Receipt Date: 20060830
  Transmission Date: 20061208
  Serious: Yes (Hospitalization)
  Sender: FDA-Public Use
  Company Number: FR-GLAXOSMITHKLINE-B0437137B

PATIENT
  Sex: Male

DRUGS (5)
  1. DEROXAT [Suspect]
     Dosage: 20MG PER DAY
     Dates: start: 20060501, end: 20060802
  2. TERCIAN [Suspect]
     Dates: start: 20060521, end: 20060802
  3. THERALENE [Suspect]
     Dates: start: 20060521, end: 20060701
  4. ZYPREXA [Concomitant]
     Dates: start: 20060505, end: 20060802
  5. LOXEN [Concomitant]
     Dates: start: 20060101, end: 20060101

REACTIONS (13)
  - 21-HYDROXYLASE DEFICIENCY [None]
  - DRUG EXPOSURE DURING PREGNANCY [None]
  - ESCHERICHIA SEPSIS [None]
  - FOETAL DISTRESS SYNDROME [None]
  - HAEMATOMA [None]
  - HYPOTONIA [None]
  - MACROSOMIA [None]
  - MECONIUM ILEUS [None]
  - NECROTISING ENTEROCOLITIS NEONATAL [None]
  - OEDEMA [None]
  - PREMATURE BABY [None]
  - URINE SODIUM INCREASED [None]
  - WEIGHT DECREASED [None]
